FAERS Safety Report 8506311-2 (Version None)
Quarter: 2012Q3

REPORT INFORMATION
  Report Type: 
  Country: None (occurrence: None)
  Receive Date: 20120712
  Receipt Date: 20120703
  Transmission Date: 20120928
  Serious: Yes (Other)
  Sender: FDA-Public Use
  Company Number: US-ROCHE-1085891

PATIENT
  Sex: Male
  Weight: 105.33 kg

DRUGS (6)
  1. XELODA [Suspect]
     Indication: COLON CANCER
     Route: 048
     Dates: start: 20100412, end: 20100810
  2. ASPIRIN [Concomitant]
  3. RAMIPRIL [Concomitant]
  4. CARVEDILOL [Concomitant]
  5. METFORMIN HCL [Concomitant]
  6. LIPITOR [Concomitant]

REACTIONS (5)
  - BLISTER [None]
  - RASH [None]
  - SKIN EXFOLIATION [None]
  - ERYTHEMA [None]
  - GINGIVAL ULCERATION [None]
